FAERS Safety Report 9340739 (Version 7)
Quarter: 2014Q1

REPORT INFORMATION
  Report Type: Spontaneous
  Country: US (occurrence: US)
  Receive Date: 20130610
  Receipt Date: 20140324
  Transmission Date: 20141002
  Serious: Yes (Hospitalization, Other)
  Sender: FDA-Public Use
  Company Number: US-MERCK-1305USA017829

PATIENT
  Sex: Female
  Weight: 73.16 kg

DRUGS (12)
  1. FOSAMAX [Suspect]
     Indication: OSTEOPOROSIS
     Dosage: 70 MG, QW
     Route: 048
     Dates: start: 200211, end: 200802
  2. ALENDRONATE SODIUM [Suspect]
     Indication: OSTEOPOROSIS
     Dosage: 70 MG, QW
     Route: 048
     Dates: start: 200802, end: 201003
  3. VITAMINS (UNSPECIFIED) [Concomitant]
     Dosage: UNK UNK, QD
     Dates: start: 1980
  4. CALCIUM (UNSPECIFIED) (+) VITAMIN D (UNSPECIFIED) [Concomitant]
     Dosage: 1200 MG, 1000UNITS VITAMIN D
     Dates: start: 1980
  5. VITAMIN D (UNSPECIFIED) [Concomitant]
     Dosage: 5000 IU, QD
     Dates: start: 1980
  6. PRILOSEC [Concomitant]
     Dosage: 20 MG, QD
     Dates: start: 1990
  7. TAMOXIFEN [Concomitant]
     Dosage: 20 MG, QD
     Dates: start: 2001, end: 2006
  8. CORTICOSTEROIDS (UNSPECIFIED) [Concomitant]
     Dosage: UNK
     Dates: start: 1990, end: 2013
  9. SELECTIVE ESTROGEN RECEPTOR MODULATOR (UNSPECIFIED) [Concomitant]
     Dosage: UNK
     Dates: start: 2001, end: 2006
  10. TAMOXIFEN CITRATE [Concomitant]
     Dosage: UNK
     Dates: start: 2001, end: 2006
  11. SUPARTZ [Concomitant]
     Indication: OSTEOARTHRITIS
  12. CALCIUM (UNSPECIFIED) [Concomitant]
     Indication: OSTEOPOROSIS
     Dosage: 500 MG, TID
     Route: 048

REACTIONS (57)
  - Femur fracture [Unknown]
  - Femur fracture [Unknown]
  - Femur fracture [Unknown]
  - Open reduction of fracture [Unknown]
  - Internal fixation of fracture [Unknown]
  - Haemorrhagic anaemia [Unknown]
  - Device failure [Unknown]
  - Hip arthroplasty [Unknown]
  - Hip arthroplasty [Unknown]
  - Bone graft [Unknown]
  - Peroneal nerve palsy [Unknown]
  - Femur fracture [Unknown]
  - Fracture nonunion [Unknown]
  - Vitamin D deficiency [Unknown]
  - Limb deformity [Not Recovered/Not Resolved]
  - Peroneal nerve palsy postoperative [Unknown]
  - Anaemia postoperative [Unknown]
  - Acquired oesophageal web [Unknown]
  - Lipoma excision [Unknown]
  - Cataract operation [Unknown]
  - Depression [Unknown]
  - Temporomandibular joint syndrome [Unknown]
  - Pituitary tumour benign [Unknown]
  - Fibrocystic breast disease [Unknown]
  - Spinal osteoarthritis [Unknown]
  - Vertebral foraminal stenosis [Unknown]
  - Intervertebral disc space narrowing [Unknown]
  - Osteoarthritis [Unknown]
  - Osteopenia [Unknown]
  - Osteosclerosis [Unknown]
  - Fracture delayed union [Unknown]
  - Joint effusion [Unknown]
  - Oestrogen deficiency [Unknown]
  - Sciatica [Unknown]
  - Sleep apnoea syndrome [Unknown]
  - Palatal operation [Unknown]
  - Haemorrhoid operation [Unknown]
  - Toe operation [Unknown]
  - Cough [Unknown]
  - Device breakage [Unknown]
  - Limb asymmetry [Unknown]
  - Gout [Not Recovered/Not Resolved]
  - Neuropathy peripheral [Unknown]
  - Adenotonsillectomy [Unknown]
  - Temporomandibular joint surgery [Unknown]
  - Nasal septal operation [Unknown]
  - Pain [Not Recovered/Not Resolved]
  - Fatigue [Unknown]
  - Cough [Unknown]
  - Vaginal discharge [Unknown]
  - Osteoarthritis [Unknown]
  - Lymphoedema [Recovering/Resolving]
  - Musculoskeletal pain [Unknown]
  - Gastritis [Not Recovered/Not Resolved]
  - Arthralgia [Unknown]
  - Oedema peripheral [Unknown]
  - Nausea [Unknown]
